FAERS Safety Report 14165896 (Version 2)
Quarter: 2019Q4

REPORT INFORMATION
  Report Type: Other
  Country: GB (occurrence: GB)
  Receive Date: 20171107
  Receipt Date: 20191231
  Transmission Date: 20200122
  Serious: Yes (Death)
  Sender: FDA-Public Use
  Company Number: GB-GLENMARK PHARMACEUTICALS-2017GMK029468

PATIENT

DRUGS (7)
  1. VALIUM [Suspect]
     Active Substance: DIAZEPAM
     Indication: PRODUCT USED FOR UNKNOWN INDICATION
     Dosage: UNK
     Route: 065
  2. HEROIN [Suspect]
     Active Substance: DIAMORPHINE
     Indication: PRODUCT USED FOR UNKNOWN INDICATION
     Dosage: UNK
     Route: 065
  3. CANNABIS [Suspect]
     Active Substance: CANNABIS SATIVA SUBSP. INDICA TOP
     Indication: PRODUCT USED FOR UNKNOWN INDICATION
     Dosage: UNK
     Route: 065
  4. GABAPENTIN. [Suspect]
     Active Substance: GABAPENTIN
     Indication: PRODUCT USED FOR UNKNOWN INDICATION
     Dosage: UNK
     Route: 065
  5. DIAMORPHINE [Suspect]
     Active Substance: DIAMORPHINE
     Indication: PRODUCT USED FOR UNKNOWN INDICATION
     Dosage: UNK (INJECTED AND SMOKED)
     Route: 065
  6. BUPRENORPHIN [Suspect]
     Active Substance: BUPRENORPHINE
     Indication: PRODUCT USED FOR UNKNOWN INDICATION
     Dosage: UNK
     Route: 065
  7. PHENAZEPAM [Suspect]
     Active Substance: PHENAZEPAM
     Indication: PRODUCT USED FOR UNKNOWN INDICATION
     Dosage: UNK
     Route: 065

REACTIONS (7)
  - Dysarthria [Fatal]
  - Overdose [Fatal]
  - Gait disturbance [Fatal]
  - Disorientation [Fatal]
  - Memory impairment [Fatal]
  - Pneumonia aspiration [Fatal]
  - Incoherent [Fatal]

NARRATIVE: CASE EVENT DATE: 20130724
